FAERS Safety Report 8077491-0 (Version None)
Quarter: 2012Q1

REPORT INFORMATION
  Report Type: 
  Country: None (occurrence: None)
  Receive Date: 20120126
  Receipt Date: 20120126
  Transmission Date: 20120608
  Serious: Yes (Hospitalization)
  Sender: FDA-Public Use
  Company Number: None

PATIENT
  Age: 65 Year
  Sex: Female
  Weight: 88.9 kg

DRUGS (21)
  1. FLUTICASONE PROPIONATE [Concomitant]
  2. PERCOCET [Concomitant]
  3. AMLODIPINE [Concomitant]
  4. OMEPRAZOLE [Concomitant]
  5. BUSPIRONE HCL [Concomitant]
  6. THERAPEUTIC MULTIVITAMIN [Concomitant]
  7. OMEGA-3 FATTY ACIDS [Concomitant]
  8. MIRTAZAPINE [Concomitant]
  9. METHYLCELLULOSE ORAL POWDER [Concomitant]
  10. MAGNESIUM OXIDE [Concomitant]
  11. ALBUTEROL [Concomitant]
  12. ALBUTEROL [Concomitant]
  13. IPRATROPIUM BROMIDE [Concomitant]
  14. CYANOCOBALAMIN [Concomitant]
  15. CRESTOR [Suspect]
     Indication: HYPERLIPIDAEMIA
     Dosage: 1/2 TABLET ONCE DAILY PO
     Route: 048
     Dates: start: 20110907, end: 20120102
  16. FENOFIBRATE [Suspect]
     Indication: HYPERLIPIDAEMIA
     Dosage: 1 TABLET ONCE DAILY PO
     Route: 048
     Dates: start: 20090401, end: 20120102
  17. DIAZEPAM [Concomitant]
  18. METHADONE HCL [Concomitant]
  19. MOMETASONE-FORMOTEROL [Concomitant]
  20. LISINOPRIL [Concomitant]
  21. BUMETANIDE [Concomitant]

REACTIONS (9)
  - BACK PAIN [None]
  - BLOOD CREATINE PHOSPHOKINASE INCREASED [None]
  - PAIN [None]
  - HYPONATRAEMIA [None]
  - INAPPROPRIATE ANTIDIURETIC HORMONE SECRETION [None]
  - ABDOMINAL PAIN [None]
  - ASTHENIA [None]
  - MYALGIA [None]
  - FALL [None]
